FAERS Safety Report 6051314-3 (Version None)
Quarter: 2009Q1

REPORT INFORMATION
  Report Type: 
  Country: None (occurrence: None)
  Receive Date: 20090121
  Receipt Date: 20090121
  Transmission Date: 20090719
  Serious: Yes (Death)
  Sender: FDA-Public Use
  Company Number: None

PATIENT
  Age: 79 Year
  Sex: Male
  Weight: 77 kg

DRUGS (7)
  1. ENOXAPARIN SODIUM [Suspect]
     Indication: THROMBOSIS PROPHYLAXIS
     Dosage: 40MG QDAY SQ
     Route: 058
  2. PRAVASTATIN SODIUM [Suspect]
  3. LISINOPRIL [Concomitant]
  4. LEVOTHYROXINE [Concomitant]
  5. HALOPERIDOL [Concomitant]
  6. VICODIN [Concomitant]
  7. LORAZEPAM [Concomitant]

REACTIONS (1)
  - GASTROINTESTINAL HAEMORRHAGE [None]
